FAERS Safety Report 4825212-4 (Version None)
Quarter: 2005Q4

REPORT INFORMATION
  Report Type: 
  Country: None (occurrence: None)
  Receive Date: 20051109
  Receipt Date: 20051028
  Transmission Date: 20060501
  Serious: Yes (Disabling)
  Sender: FDA-Public Use
  Company Number: 2005ADE/CIPRO-010

PATIENT
  Age: 45 Year
  Sex: Female

DRUGS (3)
  1. CIPROFLOXACIN 500MG FILMTABLETTEN-RATIOPHARM [Suspect]
     Indication: RESPIRATORY TRACT INFECTION
     Dosage: 500MG X 2, DAILY, ORAL
     Route: 048
     Dates: start: 20041119, end: 20041122
  2. AMBROXOL [Concomitant]
  3. PLASTIC IUD WITH PROGESTOGENS [Concomitant]

REACTIONS (2)
  - IMPAIRED WORK ABILITY [None]
  - TENOSYNOVITIS [None]
